FAERS Safety Report 9648306 (Version 1)
Quarter: 2013Q4

REPORT INFORMATION
  Report Type: Spontaneous
  Country: US (occurrence: US)
  Receive Date: 20131028
  Receipt Date: 20131028
  Transmission Date: 20140711
  Serious: No
  Sender: FDA-Public Use
  Company Number: US-009507513-1310USA008188

PATIENT
  Sex: 0

DRUGS (1)
  1. PREGNYL [Suspect]

REACTIONS (3)
  - Poor quality drug administered [Unknown]
  - Incorrect product storage [Unknown]
  - No adverse event [Unknown]
